FAERS Safety Report 5375864-8 (Version None)
Quarter: 2007Q3

REPORT INFORMATION
  Report Type: 
  Country: None (occurrence: None)
  Receive Date: 20070702
  Receipt Date: 20070622
  Transmission Date: 20080115
  Serious: Yes (Hospitalization, Other)
  Sender: FDA-Public Use
  Company Number: PHNU2007DE00665

PATIENT
  Age: 75 Year
  Sex: Female

DRUGS (28)
  1. ZOMETA [Suspect]
     Indication: OSTEOPENIA
     Route: 042
     Dates: start: 20040602
  2. ZOMETA [Suspect]
     Dosage: EVERY 8 WEEKS
     Dates: start: 20050104
  3. ZOMETA [Suspect]
     Dosage: UNK, QMO
     Dates: start: 20050816, end: 20060920
  4. ACETYLSALICYLIC ACID SRT [Suspect]
     Dosage: 100 MG/DAY
     Route: 065
  5. ALKERAN [Suspect]
     Indication: PLASMACYTOMA
     Dates: start: 20060511
  6. ALKERAN [Suspect]
     Route: 065
     Dates: start: 20060524
  7. ALKERAN [Suspect]
     Route: 065
     Dates: start: 20050427
  8. ALKERAN [Suspect]
     Route: 065
     Dates: start: 20060427
  9. ALKERAN [Suspect]
     Route: 065
     Dates: start: 20060621
  10. ALKERAN [Suspect]
     Dates: start: 20060719
  11. CORTISONE ACETATE [Suspect]
     Route: 065
  12. FORTECORTIN [Concomitant]
     Dosage: 20 MG/DAY
     Route: 048
     Dates: start: 20060427, end: 20060430
  13. FORTECORTIN [Concomitant]
     Dosage: 20 MG/DAY
     Route: 048
     Dates: start: 20060511, end: 20060514
  14. FORTECORTIN [Concomitant]
     Dosage: 20 MG/DAY
     Route: 048
     Dates: start: 20060524, end: 20060527
  15. FORTECORTIN [Concomitant]
     Dosage: 20 MG/DAY
     Route: 048
     Dates: start: 20060720, end: 20060722
  16. ARLEVERT [Concomitant]
     Dosage: 20 MG, TID
     Route: 048
  17. MAGNESIUM SULFATE [Concomitant]
     Route: 065
  18. ADALAT [Concomitant]
     Dosage: 1 DF, QD
     Route: 048
  19. ISOKET RETARD [Concomitant]
     Dosage: 1 DF, BID
     Route: 048
  20. DICLOFENAC [Concomitant]
     Route: 065
  21. HYDROCHLOROTHIAZIDE [Concomitant]
     Route: 065
  22. TRAMADOL HCL [Concomitant]
     Dosage: 150 MG/DAY
     Route: 065
  23. METRONIDAZOLE [Concomitant]
     Route: 065
  24. STAPHYLEX [Concomitant]
     Route: 042
  25. MELPHALAN [Concomitant]
     Dosage: 26 MG/DAY
     Route: 065
     Dates: start: 20060427, end: 20060427
  26. MELPHALAN [Concomitant]
     Dosage: 26 MG/DAY
     Route: 065
     Dates: start: 20060524, end: 20060524
  27. MELPHALAN [Concomitant]
     Dosage: 26 MG/DAY
     Route: 065
     Dates: start: 20060621, end: 20060621
  28. MELPHALAN [Concomitant]
     Dosage: 26 MG/DAY
     Route: 065
     Dates: start: 20060719, end: 20060719

REACTIONS (40)
  - ACTINOMYCOSIS [None]
  - ACUTE SINUSITIS [None]
  - AMNESIA [None]
  - ANTIBIOTIC PROPHYLAXIS [None]
  - BIOPSY [None]
  - BLOOD CREATININE INCREASED [None]
  - BLOOD IMMUNOGLOBULIN A INCREASED [None]
  - BONE DISORDER [None]
  - CELLULITIS [None]
  - DENTAL ALVEOLAR ANOMALY [None]
  - DENTAL FISTULA [None]
  - DENTAL OPERATION [None]
  - DEPRESSION [None]
  - DISTURBANCE IN ATTENTION [None]
  - FIBROMA [None]
  - GENERAL ANAESTHESIA [None]
  - GINGIVAL SWELLING [None]
  - GINGIVAL ULCERATION [None]
  - HAEMOGLOBIN DECREASED [None]
  - HISTOLOGY ABNORMAL [None]
  - IMPAIRED HEALING [None]
  - JAW DISORDER [None]
  - LEUKOPENIA [None]
  - NASAL OPERATION [None]
  - ODONTOGENIC CYST [None]
  - OEDEMA MOUTH [None]
  - OPERATIVE HAEMORRHAGE [None]
  - OSTEITIS [None]
  - OSTEOMYELITIS CHRONIC [None]
  - OSTEONECROSIS [None]
  - OSTEOTOMY [None]
  - PLASTIC SURGERY [None]
  - POST PROCEDURAL HAEMATOMA [None]
  - PRIMARY SEQUESTRUM [None]
  - PURULENT DISCHARGE [None]
  - SEQUESTRECTOMY [None]
  - SWELLING [None]
  - TOOTH LOSS [None]
  - TUMOUR EXCISION [None]
  - X-RAY ABNORMAL [None]
